FAERS Safety Report 19419595 (Version 2)
Quarter: 2021Q3

REPORT INFORMATION
  Report Type: Report from Study
  Country: IT (occurrence: IT)
  Receive Date: 20210615
  Receipt Date: 20210917
  Transmission Date: 20211014
  Serious: Yes (Other)
  Sender: FDA-Public Use
  Company Number: NVSC2021IT122870

PATIENT
  Sex: Female
  Weight: 2.63 kg

DRUGS (2)
  1. CRIZANLIZUMAB [Suspect]
     Active Substance: CRIZANLIZUMAB
     Indication: FOETAL EXPOSURE DURING PREGNANCY
     Dosage: MATERNAL DOSE: 5 MG/KG
     Route: 064
     Dates: start: 20200123, end: 20200630
  2. HYDROXYUREA. [Concomitant]
     Active Substance: HYDROXYUREA
     Indication: FOETAL EXPOSURE DURING PREGNANCY
     Dosage: MATERNAL DOSE: 500 MG (2)
     Route: 064
     Dates: start: 20150101, end: 20200707

REACTIONS (3)
  - Ventricular septal defect [Unknown]
  - Premature baby [Unknown]
  - Foetal exposure during pregnancy [Unknown]

NARRATIVE: CASE EVENT DATE: 20210226
